FAERS Safety Report 18435805 (Version 1)
Quarter: 2020Q4

REPORT INFORMATION
  Report Type: Spontaneous
  Country: US (occurrence: US)
  Receive Date: 20201028
  Receipt Date: 20201028
  Transmission Date: 20210114
  Serious: No
  Sender: FDA-Public Use
  Company Number: US-AKCEA THERAPEUTICS-2020IS001366

PATIENT
  Age: 74 Year
  Sex: Female

DRUGS (2)
  1. ISSD (INTEGRATED SYRINGE SAFETY DEVICE) [Suspect]
     Active Substance: DEVICE
  2. TEGSEDI [Suspect]
     Active Substance: INOTERSEN SODIUM
     Indication: HEREDITARY NEUROPATHIC AMYLOIDOSIS
     Route: 058

REACTIONS (8)
  - Protein urine present [Unknown]
  - Bacterial test positive [Unknown]
  - Blood creatinine abnormal [Unknown]
  - Urine protein/creatinine ratio abnormal [Unknown]
  - Glomerular filtration rate decreased [Unknown]
  - Urine abnormality [Unknown]
  - Creatinine urine abnormal [Unknown]
  - Urinary casts [Unknown]
